FAERS Safety Report 25930641 (Version 1)
Quarter: 2025Q4

REPORT INFORMATION
  Report Type: Spontaneous
  Country: US (occurrence: US)
  Receive Date: 20251016
  Receipt Date: 20251016
  Transmission Date: 20260118
  Serious: No
  Sender: MERZ
  Company Number: US-MRZWEB-2025090000162

PATIENT

DRUGS (2)
  1. XEOMIN [Suspect]
     Active Substance: INCOBOTULINUMTOXINA
     Indication: Torticollis
     Dosage: 150 INTERNATIONAL UNIT
     Route: 030
  2. XEOMIN [Suspect]
     Active Substance: INCOBOTULINUMTOXINA
     Dosage: 200 INTERNATIONAL UNIT
     Route: 030

REACTIONS (2)
  - Therapeutic response decreased [Unknown]
  - Off label use [Unknown]
